FAERS Safety Report 19058499 (Version 1)
Quarter: 2021Q1

REPORT INFORMATION
  Report Type: Other
  Country: US (occurrence: US)
  Receive Date: 20210325
  Receipt Date: 20210325
  Transmission Date: 20210420
  Serious: Yes (Hospitalization, Other)
  Sender: FDA-Public Use
  Company Number: US-ROCHE-2749660

PATIENT
  Age: 58 Year
  Sex: Female
  Weight: 83.99 kg

DRUGS (8)
  1. TEGRETOL [Concomitant]
     Active Substance: CARBAMAZEPINE
  2. AUBAGIO [Concomitant]
     Active Substance: TERIFLUNOMIDE
  3. DETROL [Concomitant]
     Active Substance: TOLTERODINE TARTRATE
  4. DRONABINOL. [Concomitant]
     Active Substance: DRONABINOL
  5. OCREVUS [Suspect]
     Active Substance: OCRELIZUMAB
     Indication: RELAPSING-REMITTING MULTIPLE SCLEROSIS
     Route: 042
     Dates: start: 201911
  6. BACLOFEN. [Concomitant]
     Active Substance: BACLOFEN
  7. LISINOPRIL. [Concomitant]
     Active Substance: LISINOPRIL
  8. TECFIDERA [Concomitant]
     Active Substance: DIMETHYL FUMARATE

REACTIONS (2)
  - Vasculitis [Recovered/Resolved with Sequelae]
  - Cerebrovascular accident [Recovered/Resolved with Sequelae]

NARRATIVE: CASE EVENT DATE: 20201222
